FAERS Safety Report 4476675-8 (Version None)
Quarter: 2004Q4

REPORT INFORMATION
  Report Type: 
  Country: None (occurrence: None)
  Receive Date: 20041015
  Receipt Date: 20041015
  Transmission Date: 20050328
  Serious: Yes (Hospitalization)
  Sender: FDA-Public Use
  Company Number: None

PATIENT
  Age: 60 Year
  Sex: Female
  Weight: 93 kg

DRUGS (5)
  1. VIDAZA [Suspect]
     Indication: ACUTE MYELOID LEUKAEMIA
     Dosage: 7 DOSES SUBCUTANEOUS
     Route: 058
     Dates: start: 20040903, end: 20040909
  2. CIPRO [Concomitant]
  3. ACYCLOVIR [Concomitant]
  4. ACTOS [Concomitant]
  5. LISINOPRIL [Concomitant]

REACTIONS (2)
  - RASH [None]
  - VASCULITIS [None]
